FAERS Safety Report 6690781-9 (Version None)
Quarter: 2010Q2

REPORT INFORMATION
  Report Type: 
  Country: None (occurrence: None)
  Receive Date: 20100421
  Receipt Date: 20100415
  Transmission Date: 20101027
  Serious: Yes (Hospitalization)
  Sender: FDA-Public Use
  Company Number: JP-EISAI INC.-E2090-01145-SPO-JP

PATIENT
  Age: 26 Year
  Sex: Female

DRUGS (1)
  1. EXCEGRAN [Suspect]
     Dosage: UNKNOWN
     Route: 048
     Dates: end: 20100401

REACTIONS (3)
  - COUGH [None]
  - DRUG ERUPTION [None]
  - PYREXIA [None]
